FAERS Safety Report 14590575 (Version 5)
Quarter: 2018Q2

REPORT INFORMATION
  Report Type: Spontaneous
  Country: US (occurrence: US)
  Receive Date: 20180302
  Receipt Date: 20180607
  Transmission Date: 20180711
  Serious: Yes (Hospitalization, Other)
  Sender: FDA-Public Use
  Company Number: US-PFIZER INC-2018085436

PATIENT
  Age: 52 Year
  Sex: Male

DRUGS (18)
  1. AVONEX [Suspect]
     Active Substance: INTERFERON BETA-1A
     Indication: MULTIPLE SCLEROSIS
     Dosage: 30 UG, WEEKLY
     Route: 030
     Dates: start: 20090911, end: 20110804
  2. TRILEPTAL [Suspect]
     Active Substance: OXCARBAZEPINE
     Dosage: 300 MG, 2X/DAY
     Route: 048
  3. PERCOCET [Concomitant]
     Active Substance: ACETAMINOPHEN\OXYCODONE HYDROCHLORIDE
     Dosage: UNK, AS NEEDED (OXYCODONE HYDROCHLORIDE: 325MG/ PARACETAMOL: 10MG) (1/2 TO 1 PO)
     Route: 048
  4. AMPYRA [Suspect]
     Active Substance: DALFAMPRIDINE
     Indication: MULTIPLE SCLEROSIS RELAPSE
     Dosage: 10 MG, 2X/DAY
     Route: 048
     Dates: start: 20110331
  5. SYNTHROID [Concomitant]
     Active Substance: LEVOTHYROXINE SODIUM
     Dosage: 100 UG, 1X/DAY
     Route: 048
  6. SOLU-MEDROL [Suspect]
     Active Substance: METHYLPREDNISOLONE SODIUM SUCCINATE
     Indication: MULTIPLE SCLEROSIS
     Dosage: 1 G, AS NEEDED
     Route: 042
  7. LYRICA [Concomitant]
     Active Substance: PREGABALIN
     Dosage: 150 UG, 3X/DAY
     Dates: start: 20110222
  8. SYNTHROID [Concomitant]
     Active Substance: LEVOTHYROXINE SODIUM
     Dosage: 25 UG, 1X/DAY
     Route: 048
     Dates: start: 20110331
  9. LYRICA [Concomitant]
     Active Substance: PREGABALIN
     Dosage: 225 MG, 1X/DAY
     Route: 048
  10. PERCOCET [Concomitant]
     Active Substance: ACETAMINOPHEN\OXYCODONE HYDROCHLORIDE
     Dosage: UNK UNK, 1X/DAY [(OXYCODONE HYDROCHLORIDE: 325MG)/ (PARACETAMOL : 10MG)]
     Route: 048
     Dates: start: 20110331
  11. COPAXONE [Concomitant]
     Active Substance: GLATIRAMER ACETATE
     Dosage: 20 MG, DAILY
     Route: 058
  12. MIRALAX [Concomitant]
     Active Substance: POLYETHYLENE GLYCOL 3350
     Dosage: UNK UNK, 1X/DAY
  13. AVONEX [Suspect]
     Active Substance: INTERFERON BETA-1A
     Dosage: UNK
     Dates: start: 20110331
  14. TRILEPTAL [Suspect]
     Active Substance: OXCARBAZEPINE
     Indication: MULTIPLE SCLEROSIS RELAPSE
     Dosage: 150 MG, 2X/DAY
     Route: 048
     Dates: start: 20110331
  15. IBUPROFEN. [Concomitant]
     Active Substance: IBUPROFEN
     Indication: PREMEDICATION
     Dosage: 800 MG, 1X/DAY
     Route: 048
     Dates: start: 20100716
  16. SOLU-MEDROL [Suspect]
     Active Substance: METHYLPREDNISOLONE SODIUM SUCCINATE
     Dosage: 1000 MG PER DAY X 3 DAY, INFUSE OVER 2 HOURS
     Route: 042
  17. LISINOPRIL. [Concomitant]
     Active Substance: LISINOPRIL
     Dosage: 10 MG, 1X/DAY
     Route: 048
     Dates: start: 20110331
  18. VOLTAREN [Concomitant]
     Active Substance: DICLOFENAC SODIUM
     Dosage: Q8 HRS
     Route: 061

REACTIONS (9)
  - Arthropathy [Recovered/Resolved]
  - Multiple sclerosis relapse [Recovered/Resolved]
  - Drug intolerance [Recovered/Resolved]
  - Insomnia [Recovered/Resolved]
  - Injection site urticaria [Recovered/Resolved]
  - Rash [Recovered/Resolved]
  - Paraesthesia [Recovering/Resolving]
  - Superficial vein prominence [Recovered/Resolved]
  - Weight decreased [Recovered/Resolved]

NARRATIVE: CASE EVENT DATE: 2009
